FAERS Safety Report 15547945 (Version 1)
Quarter: 2018Q4

REPORT INFORMATION
  Report Type: Spontaneous
  Country: TR (occurrence: TR)
  Receive Date: 20181024
  Receipt Date: 20181024
  Transmission Date: 20190205
  Serious: Yes (Other)
  Sender: FDA-Public Use
  Company Number: TR-AMGEN-TURSP2018148765

PATIENT
  Age: 47 Year
  Sex: Female

DRUGS (5)
  1. LANSOR [Concomitant]
     Active Substance: LANSOPRAZOLE
     Dosage: UNK
  2. VOLTARENE (DICLOFENAC SODIUM) [Concomitant]
     Active Substance: DICLOFENAC SODIUM
     Dosage: UNK
  3. ENBREL [Suspect]
     Active Substance: ETANERCEPT
     Indication: RHEUMATOID ARTHRITIS
     Dosage: UNK, WEEKLY
     Route: 058
     Dates: start: 20181005
  4. PLAQUENIL [HYDROXYCHLOROQUINE PHOSPHATE] [Concomitant]
     Active Substance: HYDROXYCHLOROQUINE DIPHOSPHATE
     Dosage: UNK
  5. DELTACORTRIL [PREDNISOLONE] [Concomitant]
     Dosage: UNK

REACTIONS (1)
  - Dysfunctional uterine bleeding [Unknown]

NARRATIVE: CASE EVENT DATE: 2018
